FAERS Safety Report 23298415 (Version 1)
Quarter: 2023Q4

REPORT INFORMATION
  Report Type: Spontaneous
  Country: DE (occurrence: DE)
  Receive Date: 20231214
  Receipt Date: 20231214
  Transmission Date: 20240110
  Serious: Yes (Life-Threatening, Hospitalization)
  Sender: FDA-Public Use
  Company Number: DE-Eisai-EC-2023-154972

PATIENT

DRUGS (2)
  1. LENVIMA [Suspect]
     Active Substance: LENVATINIB
     Indication: Malignant melanoma
     Dosage: UNKNOWN DOSE AND FREQUENCY
     Route: 048
     Dates: start: 2022, end: 202309
  2. KEYTRUDA [Suspect]
     Active Substance: PEMBROLIZUMAB
     Indication: Malignant melanoma
     Dosage: UNKNOWN DOSE AND FREQUENCY
     Route: 041
     Dates: start: 2022

REACTIONS (2)
  - Pneumatosis intestinalis [Recovered/Resolved]
  - Brain oedema [Recovered/Resolved]

NARRATIVE: CASE EVENT DATE: 20230101
